FAERS Safety Report 8425866 (Version 5)
Quarter: 2015Q1

REPORT INFORMATION
  Report Type: Report from Study
  Country: FR (occurrence: FR)
  Receive Date: 20120224
  Receipt Date: 20150226
  Transmission Date: 20150721
  Serious: Yes (Other)
  Sender: FDA-Public Use
  Company Number: FR-TEVA-323687USA

PATIENT
  Age: 71 Year
  Sex: Female
  Weight: 84 kg

DRUGS (2)
  1. BENDAMUSTINE [Suspect]
     Active Substance: BENDAMUSTINE
     Route: 042
     Dates: start: 20110405, end: 20110515
  2. RITUXIMAB [Suspect]
     Active Substance: RITUXIMAB
     Dates: start: 20110628, end: 20111018

REACTIONS (1)
  - Interstitial lung disease [Recovered/Resolved]

NARRATIVE: CASE EVENT DATE: 20111208
